FAERS Safety Report 6362071-5 (Version None)
Quarter: 2009Q3

REPORT INFORMATION
  Report Type: 
  Country: None (occurrence: None)
  Receive Date: 20090918
  Receipt Date: 20090910
  Transmission Date: 20100115
  Serious: Yes (Disabling, Other)
  Sender: FDA-Public Use
  Company Number: PHEH2009US10458

PATIENT
  Sex: Female
  Weight: 70.295 kg

DRUGS (6)
  1. EXELON [Suspect]
     Indication: MEMORY IMPAIRMENT
     Dosage: UNK
     Route: 062
     Dates: start: 20090829, end: 20090831
  2. ACTONEL [Concomitant]
     Dosage: 35 MG, QW
     Route: 048
  3. NAMENDA [Concomitant]
     Indication: MEMORY IMPAIRMENT
     Dosage: 10 MG, BID
     Route: 048
  4. TRAMADOL HCL [Concomitant]
     Indication: PAIN
     Dosage: 50 MG, TID
     Route: 048
  5. HALDOL [Concomitant]
     Indication: RESTLESSNESS
     Dosage: 0.25 MG, BID
  6. SPIRIVA [Concomitant]
     Indication: CHRONIC OBSTRUCTIVE PULMONARY DISEASE
     Dosage: UNK

REACTIONS (6)
  - CONFUSIONAL STATE [None]
  - DECREASED APPETITE [None]
  - GAIT DISTURBANCE [None]
  - HYPOTENSION [None]
  - LETHARGY [None]
  - NAUSEA [None]
